FAERS Safety Report 24090344 (Version 1)
Quarter: 2024Q3

REPORT INFORMATION
  Report Type: Spontaneous
  Country: BR (occurrence: BR)
  Receive Date: 20240715
  Receipt Date: 20240715
  Transmission Date: 20241017
  Serious: Yes (Hospitalization)
  Sender: ULTRAGENYX PHARMACEUTICAL
  Company Number: BR-ULTRAGENYX PHARMACEUTICAL INC.-BR-UGX-24-00225

PATIENT
  Age: 14 Year
  Sex: Female

DRUGS (1)
  1. DOJOLVI [Suspect]
     Active Substance: TRIHEPTANOIN
     Indication: Carnitine palmitoyltransferase deficiency
     Dosage: UNK

REACTIONS (1)
  - Viral infection [Recovered/Resolved]
